FAERS Safety Report 10485783 (Version 2)
Quarter: 2014Q4

REPORT INFORMATION
  Report Type: Spontaneous
  Country: PL (occurrence: PL)
  Receive Date: 20141001
  Receipt Date: 20141121
  Transmission Date: 20150528
  Serious: Yes (Hospitalization)
  Sender: FDA-Public Use
  Company Number: PL-BIOGENIDEC-2014BI099193

PATIENT
  Age: 17 Year
  Sex: Female
  Weight: 56 kg

DRUGS (1)
  1. AVONEX [Suspect]
     Active Substance: INTERFERON BETA-1A
     Indication: MULTIPLE SCLEROSIS
     Route: 030
     Dates: start: 20120807, end: 20140605

REACTIONS (3)
  - Multiple sclerosis [Unknown]
  - Hypothyroidism [Recovered/Resolved with Sequelae]
  - Influenza like illness [Unknown]

NARRATIVE: CASE EVENT DATE: 20140605
